FAERS Safety Report 5468657-4 (Version None)
Quarter: 2007Q3

REPORT INFORMATION
  Report Type: 
  Country: None (occurrence: None)
  Receive Date: 20070921
  Receipt Date: 20070911
  Transmission Date: 20080115
  Serious: Yes (Death, Other)
  Sender: FDA-Public Use
  Company Number: 2007P1000647

PATIENT
  Age: 30 Year
  Sex: Female

DRUGS (6)
  1. BUSULFAN            (BUSULFAN) [Suspect]
     Indication: STEM CELL TRANSPLANT
     Dosage: 26.12 ML;QD;IV
     Route: 042
     Dates: start: 20070719, end: 20070722
  2. CYCLOPHOSPHAMIDE [Concomitant]
  3. VALPROATE SODIUM [Concomitant]
  4. NEUPOGEN [Concomitant]
  5. METHOTREXATE [Concomitant]
  6. CICLOSPORIN [Concomitant]

REACTIONS (6)
  - ALLOGENIC BONE MARROW TRANSPLANTATION THERAPY [None]
  - FEBRILE NEUTROPENIA [None]
  - HAPTOGLOBIN DECREASED [None]
  - PLATELET COUNT DECREASED [None]
  - RED BLOOD CELL SCHISTOCYTES PRESENT [None]
  - THROMBOTIC MICROANGIOPATHY [None]
